FAERS Safety Report 7316427-4 (Version None)
Quarter: 2011Q1

REPORT INFORMATION
  Report Type: 
  Country: None (occurrence: None)
  Receive Date: 20110225
  Receipt Date: 20110217
  Transmission Date: 20110831
  Serious: Yes (Hospitalization, Disabling, Other)
  Sender: FDA-Public Use
  Company Number: US-MERCK-1008USA01079

PATIENT
  Age: 80 Year
  Sex: Female

DRUGS (1)
  1. FOSAMAX [Suspect]
     Indication: OSTEOPOROSIS
     Route: 048
     Dates: start: 20020430, end: 20070301

REACTIONS (55)
  - HYPONATRAEMIA [None]
  - ABDOMINAL PAIN [None]
  - CATARACT [None]
  - BLOOD CHOLESTEROL INCREASED [None]
  - DEPRESSION [None]
  - DYSPHAGIA [None]
  - RECTAL HAEMORRHAGE [None]
  - MITRAL VALVE INCOMPETENCE [None]
  - BASAL CELL CARCINOMA [None]
  - DEHYDRATION [None]
  - NORMOCHROMIC NORMOCYTIC ANAEMIA [None]
  - JAW DISORDER [None]
  - TOOTH DISORDER [None]
  - ORAL CAVITY FISTULA [None]
  - OSTEONECROSIS OF JAW [None]
  - ADVERSE DRUG REACTION [None]
  - BLISTER [None]
  - IRRITABLE BOWEL SYNDROME [None]
  - FALL [None]
  - CHRONIC OBSTRUCTIVE PULMONARY DISEASE [None]
  - UTERINE LEIOMYOMA [None]
  - SPINAL OSTEOARTHRITIS [None]
  - SWELLING [None]
  - PAIN [None]
  - IMPAIRED HEALING [None]
  - GLAUCOMA [None]
  - ANXIETY [None]
  - BACK PAIN [None]
  - ROTATOR CUFF SYNDROME [None]
  - LOOSE TOOTH [None]
  - LICHEN PLANUS [None]
  - CARDIAC DISORDER [None]
  - BLOOD UREA INCREASED [None]
  - GASTRITIS [None]
  - DRUG INTOLERANCE [None]
  - PRURITUS [None]
  - ORAL INFECTION [None]
  - MITRAL VALVE PROLAPSE [None]
  - CHEST PAIN [None]
  - DIARRHOEA [None]
  - C-REACTIVE PROTEIN INCREASED [None]
  - CARDIAC MURMUR [None]
  - CELLULITIS [None]
  - DENTAL CARIES [None]
  - NASOPHARYNGITIS [None]
  - HERPES ZOSTER [None]
  - SENSITIVITY OF TEETH [None]
  - JOINT INJURY [None]
  - ARTHROPATHY [None]
  - CAROTID ARTERY DISEASE [None]
  - OSTEOMYELITIS [None]
  - PERIARTHRITIS [None]
  - GASTROENTERITIS [None]
  - EXOSTOSIS [None]
  - BLOOD IRON DECREASED [None]
